FAERS Safety Report 26078261 (Version 1)
Quarter: 2025Q4

REPORT INFORMATION
  Report Type: Spontaneous
  Country: US (occurrence: US)
  Receive Date: 20251122
  Receipt Date: 20251122
  Transmission Date: 20260118
  Serious: Yes (Other)
  Sender: AMGEN
  Company Number: US-AMGEN-USASL2025227758

PATIENT
  Age: 91 Year
  Sex: Male
  Weight: 82.993 kg

DRUGS (30)
  1. PREDNISONE [Suspect]
     Active Substance: PREDNISONE
     Indication: Rheumatoid arthritis
     Dosage: UNK UNK, QD (LESS THAN OR EQUAL TO 5 MG)
     Route: 065
  2. PROLIA [Suspect]
     Active Substance: DENOSUMAB
     Indication: Osteoporosis
     Dosage: UNK
     Route: 065
  3. VITAMIN D2 [Concomitant]
     Active Substance: ERGOCALCIFEROL
  4. FLUTICASONE PROPIONATE [Concomitant]
     Active Substance: FLUTICASONE PROPIONATE
  5. GAMMAGARD [Concomitant]
     Active Substance: HUMAN IMMUNOGLOBULIN G
  6. ALLOPURINOL [Concomitant]
     Active Substance: ALLOPURINOL
  7. CEPHALEXIN [Concomitant]
     Active Substance: CEPHALEXIN
  8. RIFAMPIN [Concomitant]
     Active Substance: RIFAMPIN
  9. MONTELUKAST SODIUM [Concomitant]
     Active Substance: MONTELUKAST SODIUM
  10. VITAMIN E [Concomitant]
     Active Substance: .ALPHA.-TOCOPHEROL
  11. FAMOTIDINE [Concomitant]
     Active Substance: FAMOTIDINE
  12. CYANOCOBALAMIN [Concomitant]
     Active Substance: CYANOCOBALAMIN
  13. FOLIC ACID [Concomitant]
     Active Substance: FOLIC ACID
  14. GABAPENTIN [Concomitant]
     Active Substance: GABAPENTIN
  15. LANSOPRAZOLE [Concomitant]
     Active Substance: LANSOPRAZOLE
  16. MAGNESIUM OXIDE [Concomitant]
     Active Substance: MAGNESIUM OXIDE
  17. QUETIAPINE [Concomitant]
     Active Substance: QUETIAPINE
  18. VITAMIN A [Concomitant]
     Active Substance: VITAMIN A
  19. TAMSULOSIN [Concomitant]
     Active Substance: TAMSULOSIN
  20. HYDRALAZINE [Concomitant]
     Active Substance: HYDRALAZINE HYDROCHLORIDE
  21. LOSARTAN [Concomitant]
     Active Substance: LOSARTAN
  22. MEMANTINE [Concomitant]
     Active Substance: MEMANTINE
  23. DONEPEZIL [Concomitant]
     Active Substance: DONEPEZIL
  24. HERBALS [Concomitant]
     Active Substance: HERBALS
  25. VITAMIN C [Concomitant]
     Active Substance: ASCORBIC ACID
  26. UNSPECIFIED INGREDIENT [Concomitant]
     Active Substance: UNSPECIFIED INGREDIENT
  27. MINERALS\VITAMINS [Concomitant]
     Active Substance: MINERALS\VITAMINS
  28. PLAQUENIL [Concomitant]
     Active Substance: HYDROXYCHLOROQUINE SULFATE
  29. TRAMADOL [Concomitant]
     Active Substance: TRAMADOL
  30. DOXYCYCLINE [Concomitant]
     Active Substance: DOXYCYCLINE

REACTIONS (61)
  - Cervical spinal stenosis [Unknown]
  - Behcet^s syndrome [Unknown]
  - Erectile dysfunction [Unknown]
  - Osteomyelitis [Unknown]
  - Diabetes mellitus [Unknown]
  - Acute oesophageal mucosal lesion [Unknown]
  - Deafness [Unknown]
  - Systemic lupus erythematosus [Unknown]
  - Glucocorticoids abnormal [Unknown]
  - Nocturia [Unknown]
  - Lumbar spinal stenosis [Unknown]
  - Headache [Unknown]
  - Vertigo [Unknown]
  - Fatigue [Unknown]
  - Sleep disorder [Unknown]
  - Rhinorrhoea [Unknown]
  - Upper-airway cough syndrome [Unknown]
  - Temporomandibular pain and dysfunction syndrome [Unknown]
  - Dry mouth [Unknown]
  - Oral pain [Unknown]
  - Dysphonia [Unknown]
  - Lymphadenopathy [Unknown]
  - Dysphagia [Unknown]
  - Livedo reticularis [Unknown]
  - Contusion [Unknown]
  - Skin lesion [Unknown]
  - Dry skin [Unknown]
  - Rash erythematous [Unknown]
  - Skin exfoliation [Unknown]
  - Skin discolouration [Unknown]
  - Contusion [Unknown]
  - Temperature intolerance [Unknown]
  - Dry eye [Unknown]
  - Ocular hyperaemia [Unknown]
  - Dyspnoea [Unknown]
  - Oedema [Unknown]
  - Raynaud^s phenomenon [Unknown]
  - Constipation [Unknown]
  - Dyspepsia [Unknown]
  - Abdominal distension [Unknown]
  - Micturition urgency [Unknown]
  - Urinary incontinence [Unknown]
  - Neck pain [Unknown]
  - Muscle swelling [Unknown]
  - Back pain [Unknown]
  - Arthralgia [Unknown]
  - Peripheral swelling [Unknown]
  - Musculoskeletal stiffness [Unknown]
  - Muscular weakness [Unknown]
  - Balance disorder [Unknown]
  - Dizziness [Unknown]
  - Hypoaesthesia [Unknown]
  - Paraesthesia [Unknown]
  - Amnesia [Unknown]
  - Thyroid disorder [Unknown]
  - Bone density abnormal [Unknown]
  - Vitamin D deficiency [Unknown]
  - Vitamin B12 deficiency [Unknown]
  - Iron metabolism disorder [Unknown]
  - Gout [Unknown]
  - Dilatation atrial [Unknown]
